FAERS Safety Report 15395755 (Version 1)
Quarter: 2018Q3

REPORT INFORMATION
  Report Type: Spontaneous
  Country: US (occurrence: US)
  Receive Date: 20180912
  Receipt Date: 20180912
  Transmission Date: 20181010
  Serious: Yes (Disabling)
  Sender: FDA-Public Use
  Company Number: None

PATIENT
  Age: 60 Year
  Sex: Male
  Weight: 83.25 kg

DRUGS (1)
  1. LEVOFLOXACIN. [Suspect]
     Active Substance: LEVOFLOXACIN
     Indication: INFECTED CYST
     Dates: start: 20170901, end: 20170904

REACTIONS (5)
  - Tendon disorder [None]
  - Arthropathy [None]
  - Back disorder [None]
  - Impaired work ability [None]
  - Musculoskeletal disorder [None]

NARRATIVE: CASE EVENT DATE: 20170901
